FAERS Safety Report 16635418 (Version 1)
Quarter: 2019Q3

REPORT INFORMATION
  Report Type: Spontaneous
  Country: DE (occurrence: DE)
  Receive Date: 20190726
  Receipt Date: 20190726
  Transmission Date: 20191004
  Serious: Yes (Hospitalization, Other)
  Sender: FDA-Public Use
  Company Number: DE-AUROBINDO-AUR-APL-2019-043333

PATIENT

DRUGS (2)
  1. IBUPROFEN. [Suspect]
     Active Substance: IBUPROFEN
     Indication: SURGERY
     Dosage: 3000 MILLIGRAM(DAILY DOSE: 3000 MG MILLGRAM(S) EVERY TOTAL 5 SEPARATED DOSES)
     Route: 048
  2. DICLOFENAC [Suspect]
     Active Substance: DICLOFENAC
     Indication: SURGERY
     Dosage: 450 MILLIGRAM(DAILY DOSE: 450 MG MILLGRAM(S) EVERY TOTAL 6 SEPARATED DOSES)
     Route: 048

REACTIONS (1)
  - Drug-induced liver injury [Unknown]

NARRATIVE: CASE EVENT DATE: 20190626
